FAERS Safety Report 8760213 (Version 2)
Quarter: 2012Q4

REPORT INFORMATION
  Report Type: Report from Study
  Country: US (occurrence: US)
  Receive Date: 20120829
  Receipt Date: 20120831
  Transmission Date: 20130627
  Serious: Yes (Hospitalization)
  Sender: FDA-Public Use
  Company Number: US-JNJFOC-20120813837

PATIENT
  Age: 6 Year
  Sex: Male
  Weight: 29 kg

DRUGS (7)
  1. REMICADE [Suspect]
     Indication: CROHN^S DISEASE
     Route: 042
     Dates: start: 20090310, end: 20120306
  2. HUMIRA [Concomitant]
     Indication: CROHN^S DISEASE
     Dosage: loading dose; thereafter 40 mg every 2 weeks
     Route: 058
     Dates: start: 20120506, end: 20120506
  3. HUMIRA [Concomitant]
     Indication: CROHN^S DISEASE
     Dosage: loading dose
     Route: 058
     Dates: start: 2012
  4. METHOTREXATE [Concomitant]
  5. NEXIUM [Concomitant]
  6. FOLIC ACID [Concomitant]
  7. 5-ASA [Concomitant]

REACTIONS (1)
  - Crohn^s disease [Recovered/Resolved]
